FAERS Safety Report 5950935-3 (Version None)
Quarter: 2008Q4

REPORT INFORMATION
  Report Type: 
  Country: None (occurrence: None)
  Receive Date: 20081112
  Receipt Date: 20081104
  Transmission Date: 20090506
  Serious: Yes (Disabling, Other)
  Sender: FDA-Public Use
  Company Number: US-PFIZER INC-2008089489

PATIENT
  Sex: Female
  Weight: 52.2 kg

DRUGS (16)
  1. ZOLOFT [Suspect]
     Indication: INJURY
     Dates: start: 20000601, end: 20040101
  2. ZOLOFT [Suspect]
     Indication: DEPRESSION
  3. LIPITOR [Suspect]
     Indication: BLOOD CHOLESTEROL INCREASED
  4. CLONAZEPAM [Concomitant]
  5. LYRICA [Concomitant]
  6. MYFORTIC [Concomitant]
  7. PROGRAF [Concomitant]
  8. POTASSIUM CHLORIDE [Concomitant]
  9. PREDNISONE TAB [Concomitant]
  10. MAGNESIUM SULFATE [Concomitant]
  11. TOPAMAX [Concomitant]
  12. MISOPROSTOL [Concomitant]
  13. VALTREX [Concomitant]
  14. PREVACID [Concomitant]
  15. RAMIPRIL [Concomitant]
  16. LEXAPRO [Concomitant]

REACTIONS (8)
  - AGITATION [None]
  - ANEURYSM [None]
  - BLINDNESS [None]
  - BODY HEIGHT DECREASED [None]
  - DRUG INEFFECTIVE [None]
  - STARVATION [None]
  - TARDIVE DYSKINESIA [None]
  - WEIGHT DECREASED [None]
